FAERS Safety Report 9023410 (Version 2)
Quarter: 2013Q1

REPORT INFORMATION
  Report Type: Spontaneous
  Country: US (occurrence: US)
  Receive Date: 20130121
  Receipt Date: 20130214
  Transmission Date: 20140127
  Serious: Yes (Hospitalization, Other)
  Sender: FDA-Public Use
  Company Number: US-BAXTER-2013BAX002278

PATIENT
  Age: 66 None
  Sex: Male

DRUGS (3)
  1. DIANEAL LOW CALCIUM [Suspect]
     Indication: PERITONEAL DIALYSIS
     Route: 033
     Dates: start: 20121227, end: 20130130
  2. DIANEAL LOW CALCIUM [Suspect]
     Indication: PERITONEAL DIALYSIS
     Route: 033
     Dates: start: 20121227, end: 20130130
  3. DIANEAL LOW CALCIUM (ULTRABAG) [Suspect]
     Indication: PERITONEAL DIALYSIS
     Route: 033
     Dates: start: 20121227, end: 20130130

REACTIONS (4)
  - Refusal of treatment by patient [Recovering/Resolving]
  - Hypophagia [Recovering/Resolving]
  - Cerebrovascular accident [Recovering/Resolving]
  - Asthenia [Recovering/Resolving]
